FAERS Safety Report 7344900-1 (Version None)
Quarter: 2011Q1

REPORT INFORMATION
  Report Type: 
  Country: None (occurrence: None)
  Receive Date: 20110310
  Receipt Date: 20110303
  Transmission Date: 20110831
  Serious: Yes (Hospitalization)
  Sender: FDA-Public Use
  Company Number: US-US-EMD SERONO, INC.-7045286

PATIENT
  Sex: Female
  Weight: 82 kg

DRUGS (2)
  1. MICARDIS HCT [Concomitant]
     Indication: BLOOD PRESSURE
  2. REBIF [Suspect]
     Indication: MULTIPLE SCLEROSIS
     Dates: start: 20080601, end: 20080729

REACTIONS (1)
  - CONVULSION [None]
